FAERS Safety Report 9144330 (Version 1)
Quarter: 2013Q1

REPORT INFORMATION
  Report Type: Spontaneous
  Country: DK (occurrence: FR)
  Receive Date: 20130306
  Receipt Date: 20130306
  Transmission Date: 20140127
  Serious: Yes (Other)
  Sender: FDA-Public Use
  Company Number: FR-FRI-1000043174

PATIENT
  Sex: Female

DRUGS (2)
  1. ESCITALOPRAM [Suspect]
     Indication: DEPRESSION
     Dosage: 10 MG
     Route: 048
     Dates: start: 20130130
  2. TRIATEC [Concomitant]
     Indication: HYPERTENSION

REACTIONS (2)
  - Puncture site haemorrhage [Unknown]
  - Gingival bleeding [Unknown]
